FAERS Safety Report 9408162 (Version 6)
Quarter: 2014Q2

REPORT INFORMATION
  Report Type: Report from Study
  Country: JP (occurrence: JP)
  Receive Date: 20130718
  Receipt Date: 20140404
  Transmission Date: 20141212
  Serious: Yes (Hospitalization)
  Sender: FDA-Public Use
  Company Number: JP-JNJFOC-20130707952

PATIENT
  Age: 69 Year
  Sex: Male
  Weight: 61 kg

DRUGS (11)
  1. STELARA [Suspect]
     Indication: PSORIASIS
     Route: 058
     Dates: start: 20121219, end: 20121219
  2. STELARA [Suspect]
     Indication: PSORIASIS
     Route: 058
     Dates: start: 20130116, end: 20130116
  3. STELARA [Suspect]
     Indication: PSORIASIS
     Route: 058
     Dates: start: 20130410, end: 20130410
  4. STELARA [Suspect]
     Indication: PSORIASIS
     Route: 058
     Dates: start: 20130703, end: 20130703
  5. STELARA [Suspect]
     Indication: PSORIASIS
     Route: 058
     Dates: start: 20131218
  6. STELARA [Suspect]
     Indication: PSORIASIS
     Route: 058
     Dates: start: 20130925, end: 20130925
  7. OXAROL [Concomitant]
     Indication: PSORIASIS
     Dosage: AS NECESSARY
     Route: 061
  8. DERMOVATE [Concomitant]
     Indication: PSORIASIS
     Route: 061
  9. ASTAT [Concomitant]
     Indication: TINEA PEDIS
     Route: 061
     Dates: start: 20130213, end: 20130925
  10. GLYMESASON [Concomitant]
     Indication: PSORIASIS
     Route: 061
  11. SATOSALBE [Concomitant]
     Indication: PSORIASIS
     Route: 061

REACTIONS (4)
  - Vomiting [Recovered/Resolved]
  - Dizziness [Recovered/Resolved]
  - Cellulitis [Recovered/Resolved]
  - Tinea pedis [Not Recovered/Not Resolved]
